FAERS Safety Report 14684116 (Version 3)
Quarter: 2018Q2

REPORT INFORMATION
  Report Type: Spontaneous
  Country: FR (occurrence: FR)
  Receive Date: 20180327
  Receipt Date: 20180604
  Transmission Date: 20180711
  Serious: Yes (Other)
  Sender: FDA-Public Use
  Company Number: FR-OTSUKA-2018_007090

PATIENT
  Age: 54 Year
  Sex: Male
  Weight: 93 kg

DRUGS (3)
  1. JINARC [Suspect]
     Active Substance: TOLVAPTAN
     Indication: CONGENITAL CYSTIC KIDNEY DISEASE
     Dosage: 45 MG, QD (IN MORNING)
     Route: 048
     Dates: start: 20171211, end: 20180319
  2. JINARC [Suspect]
     Active Substance: TOLVAPTAN
     Dosage: 15 MG, QD (IN EVENING)
     Route: 048
     Dates: start: 20171211, end: 20180319
  3. IRBESARTAN. [Suspect]
     Active Substance: IRBESARTAN
     Indication: CONGENITAL CYSTIC KIDNEY DISEASE
     Dosage: 150 MG, DAILY
     Route: 048
     Dates: start: 20170731

REACTIONS (2)
  - Renal impairment [Not Recovered/Not Resolved]
  - Creatinine renal clearance increased [Recovering/Resolving]

NARRATIVE: CASE EVENT DATE: 20171226
